FAERS Safety Report 12980090 (Version 3)
Quarter: 2017Q4

REPORT INFORMATION
  Report Type: Report from Study
  Country: US (occurrence: US)
  Receive Date: 20161128
  Receipt Date: 20171128
  Transmission Date: 20180320
  Serious: Yes (Disabling, Other)
  Sender: FDA-Public Use
  Company Number: PHEH2016US030905

PATIENT
  Age: 13 Year
  Sex: Male
  Weight: 52.1 kg

DRUGS (7)
  1. ILARIS [Suspect]
     Active Substance: CANAKINUMAB
     Indication: JUVENILE IDIOPATHIC ARTHRITIS
     Dosage: 150 MG, EVERY 4 WEEKS
     Route: 058
     Dates: start: 20151114
  2. PREDNISONE. [Concomitant]
     Active Substance: PREDNISONE
     Dosage: 4 MG, QD
     Route: 048
     Dates: start: 20170927
  3. VITAMIN D [Concomitant]
     Active Substance: CHOLECALCIFEROL
     Indication: PRODUCT USED FOR UNKNOWN INDICATION
     Dosage: 2000 U, QD
     Route: 048
     Dates: start: 20151130
  4. PREDNISONE. [Concomitant]
     Active Substance: PREDNISONE
     Indication: JUVENILE IDIOPATHIC ARTHRITIS
     Dosage: 10 MG, QD
     Dates: start: 20170815
  5. VITAMIN B6 [Concomitant]
     Active Substance: PYRIDOXINE HYDROCHLORIDE
     Indication: PRODUCT USED FOR UNKNOWN INDICATION
     Dosage: 1 OT, QD
     Route: 048
     Dates: start: 20171010
  6. PREDNISONE. [Concomitant]
     Active Substance: PREDNISONE
     Dosage: 5 MG, QD
     Route: 048
     Dates: start: 20170817, end: 20170924
  7. LEFLUNOMIDE. [Concomitant]
     Active Substance: LEFLUNOMIDE
     Indication: JUVENILE IDIOPATHIC ARTHRITIS
     Dosage: 10 MG, QD
     Route: 048
     Dates: start: 20170207, end: 20170908

REACTIONS (21)
  - Urine abnormality [Recovered/Resolved]
  - Pain [Unknown]
  - Streptococcal infection [Unknown]
  - Tourette^s disorder [Not Recovered/Not Resolved]
  - Eye pain [Recovered/Resolved]
  - Lacrimation increased [Unknown]
  - Red cell distribution width increased [Unknown]
  - Diarrhoea [Recovered/Resolved]
  - Aphasia [Recovered/Resolved]
  - Breakthrough pain [Unknown]
  - Arthritis [Not Recovered/Not Resolved]
  - Arthralgia [Not Recovered/Not Resolved]
  - Asthenia [Unknown]
  - Oedema peripheral [Not Recovered/Not Resolved]
  - Tic [Unknown]
  - Blood urea increased [Unknown]
  - Headache [Recovered/Resolved]
  - Photophobia [Unknown]
  - Dyskinesia [Unknown]
  - Mydriasis [Recovered/Resolved]
  - Musculoskeletal stiffness [Not Recovered/Not Resolved]

NARRATIVE: CASE EVENT DATE: 20170607
